FAERS Safety Report 9607390 (Version 1)
Quarter: 2013Q4

REPORT INFORMATION
  Report Type: Spontaneous
  Country: US (occurrence: US)
  Receive Date: 20131009
  Receipt Date: 20131009
  Transmission Date: 20140711
  Serious: No
  Sender: FDA-Public Use
  Company Number: US-BAYER-2013-121596

PATIENT
  Sex: Female

DRUGS (1)
  1. YASMIN [Suspect]
     Indication: MIGRAINE
     Dosage: UNK UNK, QD
     Route: 048

REACTIONS (3)
  - Drug dose omission [None]
  - Off label use [None]
  - Inappropriate schedule of drug administration [None]
